FAERS Safety Report 23347647 (Version 2)
Quarter: 2024Q1

REPORT INFORMATION
  Report Type: Spontaneous
  Country: US (occurrence: US)
  Receive Date: 20231228
  Receipt Date: 20240228
  Transmission Date: 20240410
  Serious: Yes (Life-Threatening, Hospitalization, Other)
  Sender: FDA-Public Use
  Company Number: US-TEVA-VS-3137632

PATIENT
  Age: 11 Year
  Sex: Female

DRUGS (16)
  1. PREDNISONE [Suspect]
     Active Substance: PREDNISONE
     Indication: B-cell type acute leukaemia
     Dosage: AS INDUCTION THERAPY
     Route: 065
     Dates: start: 201810
  2. DEXAMETHASONE [Concomitant]
     Active Substance: DEXAMETHASONE
     Indication: Product used for unknown indication
     Route: 065
  3. CYTARABINE [Suspect]
     Active Substance: CYTARABINE
     Indication: B-cell type acute leukaemia
     Dosage: AS INDUCTION THERAPY
     Route: 065
     Dates: start: 201810
  4. CYTARABINE [Suspect]
     Active Substance: CYTARABINE
     Indication: B-cell type acute leukaemia
     Dosage: AS CONSOLIDATION THERAPY
     Route: 065
     Dates: start: 201902
  5. BLINATUMOMAB [Suspect]
     Active Substance: BLINATUMOMAB
     Indication: B-cell type acute leukaemia
     Dosage: EACH CYCLE OF 35 DAYS WITH 28 DAYS OF CONTINUOUS INFUSION
     Route: 065
     Dates: start: 201904
  6. BLINATUMOMAB [Suspect]
     Active Substance: BLINATUMOMAB
     Indication: B-cell type acute leukaemia
     Dosage: INFUSION FOR 2 CYCLES
     Route: 065
     Dates: start: 201812
  7. PEGASPARGASE [Suspect]
     Active Substance: PEGASPARGASE
     Indication: B-cell type acute leukaemia
     Dosage: AS INDUCTION THERAPY
     Route: 065
     Dates: start: 201810
  8. PEGASPARGASE [Suspect]
     Active Substance: PEGASPARGASE
     Indication: B-cell type acute leukaemia
     Dosage: AS CONSOLIDATION THERAPY
     Route: 065
     Dates: start: 201902
  9. METHOTREXATE [Suspect]
     Active Substance: METHOTREXATE
     Indication: B-cell type acute leukaemia
     Dosage: AS CONSOLIDATION THERAPY
     Route: 037
     Dates: start: 201902
  10. METHOTREXATE [Suspect]
     Active Substance: METHOTREXATE
     Indication: B-cell type acute leukaemia
     Dosage: AS INDUCTION THERAPY
     Route: 037
     Dates: start: 201810
  11. DAUNORUBICIN [Suspect]
     Active Substance: DAUNORUBICIN
     Indication: B-cell type acute leukaemia
     Dosage: AS INDUCTION THERAPY
     Route: 065
     Dates: start: 201810
  12. HUMAN IMMUNOGLOBULIN G [Concomitant]
     Active Substance: HUMAN IMMUNOGLOBULIN G
     Indication: Product used for unknown indication
     Route: 042
  13. CYCLOPHOSPHAMIDE [Suspect]
     Active Substance: CYCLOPHOSPHAMIDE
     Indication: B-cell type acute leukaemia
     Dosage: AS CONSOLIDATION THERAPY
     Route: 065
     Dates: start: 201902
  14. MERCAPTOPURINE [Suspect]
     Active Substance: MERCAPTOPURINE
     Indication: B-cell type acute leukaemia
     Dosage: AS CONSOLIDATION THERAPY
     Route: 065
     Dates: start: 201902
  15. VINCRISTINE [Suspect]
     Active Substance: VINCRISTINE
     Indication: B-cell type acute leukaemia
     Dosage: AS CONSOLIDATION THERAPY
     Route: 065
     Dates: start: 201902
  16. VINCRISTINE [Suspect]
     Active Substance: VINCRISTINE
     Indication: B-cell type acute leukaemia
     Dosage: AS INDUCTION THERAPY
     Route: 065
     Dates: start: 201810

REACTIONS (16)
  - Syncope [Recovered/Resolved]
  - Cryptococcal fungaemia [Recovered/Resolved]
  - Febrile neutropenia [Recovered/Resolved]
  - Asthenia [Recovered/Resolved]
  - Myelosuppression [Recovered/Resolved]
  - Sepsis [Recovered/Resolved]
  - Pseudomonas infection [Recovered/Resolved]
  - Multiple organ dysfunction syndrome [Recovered/Resolved]
  - Hypertension [Recovered/Resolved]
  - Aspergillus infection [Recovered/Resolved]
  - Torsade de pointes [Recovered/Resolved]
  - Staphylococcal sepsis [Recovered/Resolved]
  - Pneumonia [Recovered/Resolved]
  - Fungaemia [Recovered/Resolved]
  - Ventricular arrhythmia [Recovered/Resolved]
  - Seizure [Recovered/Resolved]

NARRATIVE: CASE EVENT DATE: 20181001
